FAERS Safety Report 10498319 (Version 2)
Quarter: 2014Q4

REPORT INFORMATION
  Report Type: Spontaneous
  Country: IT (occurrence: IT)
  Receive Date: 20141006
  Receipt Date: 20141006
  Transmission Date: 20150528
  Serious: Yes (Other)
  Sender: FDA-Public Use
  Company Number: IT-TEVA-504337ISR

PATIENT
  Age: 58 Year
  Sex: Male

DRUGS (8)
  1. OXALIPLATIN. [Concomitant]
     Active Substance: OXALIPLATIN
     Dosage: 134 MILLIGRAM DAILY;
     Dates: start: 20140710
  2. CAPECITABINE. [Suspect]
     Active Substance: CAPECITABINE
     Indication: ADENOCARCINOMA GASTRIC
     Dosage: 1900 MILLIGRAM DAILY; 2 TABLETS 500 MG + 6 TABLETS 150 MG EVERY DAY
     Route: 048
     Dates: start: 20140703
  3. OXALIPLATIN. [Concomitant]
     Active Substance: OXALIPLATIN
     Indication: ADENOCARCINOMA GASTRIC
     Dosage: 134 MILLIGRAM DAILY;
     Route: 042
     Dates: start: 20140704, end: 20140710
  4. CAPECITABINE. [Suspect]
     Active Substance: CAPECITABINE
     Dosage: 1900 MILLIGRAM DAILY; 2 TABLETS 500 MG + 6 TABLETS 150 MG EVERY DAY
     Route: 048
     Dates: start: 20140710
  5. OXALIPLATIN. [Concomitant]
     Active Substance: OXALIPLATIN
     Dosage: 134 MILLIGRAM DAILY;
     Dates: start: 20140731
  6. DOCETAXEL. [Concomitant]
     Active Substance: DOCETAXEL
     Indication: ADENOCARCINOMA GASTRIC
     Dosage: 57 MILLIGRAM DAILY;
     Route: 042
     Dates: start: 20140704, end: 20140710
  7. DOCETAXEL. [Concomitant]
     Active Substance: DOCETAXEL
     Dosage: 57 MILLIGRAM DAILY;
     Dates: start: 20140731
  8. DOCETAXEL. [Concomitant]
     Active Substance: DOCETAXEL
     Dosage: 57 MILLIGRAM DAILY;
     Dates: start: 20140710

REACTIONS (2)
  - Ventricular dysfunction [Recovered/Resolved]
  - Myocardial ischaemia [Recovered/Resolved]

NARRATIVE: CASE EVENT DATE: 20140717
